FAERS Safety Report 7557692-8 (Version None)
Quarter: 2011Q2

REPORT INFORMATION
  Report Type: 
  Country: None (occurrence: None)
  Receive Date: 20110620
  Receipt Date: 20110616
  Transmission Date: 20111010
  Serious: Yes (Disabling)
  Sender: FDA-Public Use
  Company Number: US-PFIZER INC-2011133419

PATIENT
  Sex: Male
  Weight: 90.7 kg

DRUGS (3)
  1. WARFARIN SODIUM [Concomitant]
     Indication: ARTERIAL DISORDER
  2. LIPITOR [Suspect]
     Indication: BLOOD CHOLESTEROL INCREASED
     Dosage: UNK
     Route: 048
  3. WARFARIN SODIUM [Concomitant]
     Indication: CARDIAC DISORDER
     Dosage: 6 MG, DAILY

REACTIONS (3)
  - MUSCULAR WEAKNESS [None]
  - FALL [None]
  - PAIN IN EXTREMITY [None]
